FAERS Safety Report 9352456 (Version 1)
Quarter: 2013Q2

REPORT INFORMATION
  Report Type: Report from Study
  Country: GB (occurrence: GB)
  Receive Date: 20130617
  Receipt Date: 20130617
  Transmission Date: 20140414
  Serious: Yes (Hospitalization)
  Sender: FDA-Public Use
  Company Number: GB-BAXTER-2013BAX021639

PATIENT
  Age: 32 Year
  Sex: Female
  Weight: 65 kg

DRUGS (15)
  1. CYCLOPHOSPHAMIDE INJECTION 1G [Suspect]
     Indication: B-CELL LYMPHOMA
     Route: 042
     Dates: start: 20120801
  2. CYCLOPHOSPHAMIDE INJECTION 1G [Suspect]
     Route: 065
     Dates: start: 20121114
  3. RITUXIMAB [Suspect]
     Indication: B-CELL LYMPHOMA
     Route: 042
     Dates: start: 20120801
  4. RITUXIMAB [Suspect]
     Route: 065
     Dates: start: 20121114
  5. VINCRISTINE SULFATE [Suspect]
     Indication: B-CELL LYMPHOMA
     Route: 042
     Dates: start: 20120801
  6. VINCRISTINE SULFATE [Suspect]
     Route: 065
     Dates: start: 20121114
  7. PREDNISONE [Suspect]
     Indication: B-CELL LYMPHOMA
     Route: 048
     Dates: start: 20120801
  8. BECLOMETASONE [Concomitant]
     Indication: ASTHMA
     Route: 065
     Dates: start: 19980614
  9. CHLORPHENIRAMINE MALEATE [Concomitant]
     Indication: PRODUCT USED FOR UNKNOWN INDICATION
     Route: 065
     Dates: start: 20120801
  10. DESOGESTREL [Concomitant]
     Indication: CONTRACEPTION
     Route: 065
     Dates: start: 20120711
  11. FLUCONAZOLE [Concomitant]
     Indication: VULVOVAGINAL CANDIDIASIS
     Route: 048
     Dates: start: 20121021, end: 20121027
  12. METHYLPREDNISOLONE [Concomitant]
     Indication: PRODUCT USED FOR UNKNOWN INDICATION
     Route: 065
     Dates: start: 20120801
  13. PARACETAMOL [Concomitant]
     Indication: PRODUCT USED FOR UNKNOWN INDICATION
     Route: 065
     Dates: start: 20120801
  14. SOLPADEINE [Concomitant]
     Indication: MIGRAINE
     Route: 065
     Dates: start: 19960614
  15. VENTOLIN [Concomitant]
     Indication: ASTHMA
     Route: 065
     Dates: start: 19980614

REACTIONS (2)
  - Infusion related reaction [Recovered/Resolved]
  - Vomiting [Recovered/Resolved]
